FAERS Safety Report 4630212-3 (Version None)
Quarter: 2005Q2

REPORT INFORMATION
  Report Type: 
  Country: None (occurrence: None)
  Receive Date: 20050408
  Receipt Date: 20050321
  Transmission Date: 20051028
  Serious: Yes (Other)
  Sender: FDA-Public Use
  Company Number: GB-BOEHRINGER INGELHEIM PHARMACEUTICALS, INC.-2005-DE-01138GD

PATIENT
  Sex: Female

DRUGS (5)
  1. ASPIRIN [Suspect]
  2. DIPYRIDAMOLE [Suspect]
  3. ACE INHIBITOR [Concomitant]
     Indication: HYPERTENSION
  4. THIAZIDE [Concomitant]
     Indication: HYPERTENSION
  5. PRAVASTATIN [Concomitant]
     Indication: HYPERCHOLESTEROLAEMIA

REACTIONS (3)
  - CAROTID ARTERY STENOSIS [None]
  - DRUG INTOLERANCE [None]
  - TRANSIENT ISCHAEMIC ATTACK [None]
